FAERS Safety Report 24603991 (Version 1)
Quarter: 2024Q4

REPORT INFORMATION
  Report Type: Report from Study
  Country: RU (occurrence: RU)
  Receive Date: 20241111
  Receipt Date: 20241111
  Transmission Date: 20250114
  Serious: Yes (Other)
  Sender: ALEXION PHARMACEUTICALS
  Company Number: RU-AstraZeneca-CH-00736631A

PATIENT
  Weight: 14 kg

DRUGS (4)
  1. SELUMETINIB [Suspect]
     Active Substance: SELUMETINIB
     Indication: Neurofibroma
     Dosage: UNK
  2. SELUMETINIB [Suspect]
     Active Substance: SELUMETINIB
     Dosage: UNK
  3. SELUMETINIB [Suspect]
     Active Substance: SELUMETINIB
     Dosage: UNK
  4. SELUMETINIB [Suspect]
     Active Substance: SELUMETINIB
     Dosage: UNK

REACTIONS (2)
  - Blood creatine phosphokinase increased [Unknown]
  - Blood lactate dehydrogenase increased [Unknown]
